FAERS Safety Report 6765271-5 (Version None)
Quarter: 2010Q2

REPORT INFORMATION
  Report Type: 
  Country: None (occurrence: None)
  Receive Date: 20100611
  Receipt Date: 20100530
  Transmission Date: 20101027
  Serious: Yes (Hospitalization)
  Sender: FDA-Public Use
  Company Number: US-ELI_LILLY_AND_COMPANY-US201006000140

PATIENT
  Sex: Female

DRUGS (10)
  1. PACLITAXEL [Suspect]
     Indication: PANCREATIC CARCINOMA
     Dosage: 125 MG/M2, UNKNOWN
     Dates: start: 20100218, end: 20100422
  2. PACLITAXEL [Suspect]
     Dosage: 125 MG/M2, UNKNOWN
     Dates: start: 20100518
  3. GEMCITABINE HYDROCHLORIDE [Suspect]
     Indication: PANCREATIC CARCINOMA
     Dosage: 1900 MG, UNK
     Route: 042
     Dates: start: 20100218
  4. CALCIUM CITRATE [Concomitant]
     Indication: OSTEOPOROSIS
     Route: 048
  5. DEXAMETHASONE [Concomitant]
     Indication: PREMEDICATION
     Dosage: 10 MG, UNK
     Route: 042
     Dates: start: 20100218
  6. GRANISETRON [Concomitant]
     Indication: PREMEDICATION
     Dosage: 1 MG, UNK
     Route: 042
     Dates: start: 20100218
  7. PROTONIX [Concomitant]
     Indication: DYSPEPSIA
     Route: 048
     Dates: start: 20100303
  8. PERCOCET [Concomitant]
     Indication: ARTHRALGIA
     Route: 048
     Dates: start: 20100304
  9. ZOFRAN [Concomitant]
     Indication: NAUSEA
     Dosage: 8 MG, AS NEEDED
     Route: 048
     Dates: start: 20100401
  10. LISINOPRIL [Concomitant]
     Indication: BLOOD PRESSURE
     Dosage: 10 MG, UNK
     Route: 048
     Dates: start: 20100419

REACTIONS (1)
  - PNEUMONIA [None]
